FAERS Safety Report 17302444 (Version 1)
Quarter: 2020Q1

REPORT INFORMATION
  Report Type: Spontaneous
  Country: NO (occurrence: NO)
  Receive Date: 20200122
  Receipt Date: 20200122
  Transmission Date: 20200409
  Serious: Yes (Hospitalization)
  Sender: FDA-Public Use
  Company Number: NO-CELGENEUS-NOR-20191201993

PATIENT
  Age: 59 Year
  Sex: Male
  Weight: 80 kg

DRUGS (78)
  1. ABRAXANE [Suspect]
     Active Substance: PACLITAXEL
     Dosage: 125 MG/M2
     Route: 041
     Dates: start: 20190521, end: 20190521
  2. ABRAXANE [Suspect]
     Active Substance: PACLITAXEL
     Dosage: 125 MG/M2
     Route: 041
     Dates: start: 20190612, end: 20190612
  3. ABRAXANE [Suspect]
     Active Substance: PACLITAXEL
     Dosage: 125 MG/M2
     Route: 041
     Dates: start: 20190716, end: 20190716
  4. ABRAXANE [Suspect]
     Active Substance: PACLITAXEL
     Dosage: 125 MG/M2
     Route: 041
     Dates: start: 20190813, end: 20190813
  5. OLECLUMAB. [Concomitant]
     Active Substance: OLECLUMAB
     Indication: DUCTAL ADENOCARCINOMA OF PANCREAS
     Dosage: 3000 MG
     Route: 042
     Dates: start: 20190218, end: 20190218
  6. OLECLUMAB. [Concomitant]
     Active Substance: OLECLUMAB
     Dosage: 3000 MG
     Route: 042
     Dates: start: 20190319, end: 20190319
  7. OLECLUMAB. [Concomitant]
     Active Substance: OLECLUMAB
     Dosage: 3000 MG
     Route: 042
     Dates: start: 20190514, end: 20190514
  8. MEDI4736 [Concomitant]
     Active Substance: DURVALUMAB
     Dosage: 1500 MILLIGRAM
     Route: 042
     Dates: start: 20190709, end: 20190709
  9. GEMCITABINE. [Concomitant]
     Active Substance: GEMCITABINE
     Indication: DUCTAL ADENOCARCINOMA OF PANCREAS
     Dosage: 1000 MG/M2
     Route: 065
     Dates: start: 20190218, end: 20190218
  10. GEMCITABINE. [Concomitant]
     Active Substance: GEMCITABINE
     Dosage: 1000 MG/M2
     Route: 065
     Dates: start: 20190528, end: 20190528
  11. GEMCITABINE. [Concomitant]
     Active Substance: GEMCITABINE
     Dosage: 1000 MG/M2
     Route: 065
     Dates: start: 20190618, end: 20190618
  12. ABRAXANE [Suspect]
     Active Substance: PACLITAXEL
     Dosage: 125 MG/M2
     Route: 041
     Dates: start: 20190402, end: 20190402
  13. ABRAXANE [Suspect]
     Active Substance: PACLITAXEL
     Dosage: 125 MG/M2
     Route: 041
     Dates: start: 20190709, end: 20190709
  14. ABRAXANE [Suspect]
     Active Substance: PACLITAXEL
     Dosage: 125 MG/M2
     Route: 041
     Dates: start: 20190910, end: 20190910
  15. ABRAXANE [Suspect]
     Active Substance: PACLITAXEL
     Dosage: 125 MG/M2
     Route: 041
     Dates: start: 20191002, end: 20191002
  16. OLECLUMAB. [Concomitant]
     Active Substance: OLECLUMAB
     Dosage: 3000 MG
     Route: 042
     Dates: start: 20190806, end: 20190806
  17. MEDI4736 [Concomitant]
     Active Substance: DURVALUMAB
     Dosage: 1500 MILLIGRAM
     Route: 042
     Dates: start: 20190416, end: 20190416
  18. GEMCITABINE. [Concomitant]
     Active Substance: GEMCITABINE
     Dosage: 1000 MG/M2
     Route: 065
     Dates: start: 20190612, end: 20190612
  19. GEMCITABINE. [Concomitant]
     Active Substance: GEMCITABINE
     Dosage: 1000 MG/M2
     Route: 065
     Dates: start: 20190806, end: 20190806
  20. GEMCITABINE. [Concomitant]
     Active Substance: GEMCITABINE
     Dosage: 1000 MG/M2
     Route: 065
     Dates: start: 20191016, end: 20191016
  21. ABRAXANE [Suspect]
     Active Substance: PACLITAXEL
     Dosage: 125 MG/M2
     Route: 041
     Dates: start: 20190819, end: 20190819
  22. ABRAXANE [Suspect]
     Active Substance: PACLITAXEL
     Dosage: 125 MG/M2
     Route: 041
     Dates: start: 20191009, end: 20191009
  23. OLECLUMAB. [Concomitant]
     Active Substance: OLECLUMAB
     Dosage: 3000 MG
     Route: 042
     Dates: start: 20190612, end: 20190612
  24. MEDI4736 [Concomitant]
     Active Substance: DURVALUMAB
     Dosage: 1500 MILLIGRAM
     Route: 042
     Dates: start: 20190903, end: 20190903
  25. GEMCITABINE. [Concomitant]
     Active Substance: GEMCITABINE
     Dosage: 1000 MG/M2
     Route: 065
     Dates: start: 20190319, end: 20190319
  26. GEMCITABINE. [Concomitant]
     Active Substance: GEMCITABINE
     Dosage: 1000 MG/M2
     Route: 065
     Dates: start: 20190716, end: 20190716
  27. GEMCITABINE. [Concomitant]
     Active Substance: GEMCITABINE
     Dosage: 1000 MG/M2
     Route: 065
     Dates: start: 20190910, end: 20190910
  28. GEMCITABINE. [Concomitant]
     Active Substance: GEMCITABINE
     Dosage: 1000 MG/M2
     Route: 065
     Dates: start: 20191002, end: 20191002
  29. GEMCITABINE. [Concomitant]
     Active Substance: GEMCITABINE
     Dosage: 1000 MG/M2
     Route: 065
     Dates: start: 20191105, end: 20191105
  30. ABRAXANE [Suspect]
     Active Substance: PACLITAXEL
     Dosage: 125 MG/M2
     Route: 041
     Dates: start: 20190326, end: 20190326
  31. ABRAXANE [Suspect]
     Active Substance: PACLITAXEL
     Dosage: 125 MG/M2
     Route: 041
     Dates: start: 20190618, end: 20190618
  32. ABRAXANE [Suspect]
     Active Substance: PACLITAXEL
     Dosage: 125 MG/M2
     Route: 041
     Dates: start: 20191016, end: 20191016
  33. ABRAXANE [Suspect]
     Active Substance: PACLITAXEL
     Dosage: 125 MG/M2
     Route: 041
     Dates: start: 20191119, end: 20191119
  34. OLECLUMAB. [Concomitant]
     Active Substance: OLECLUMAB
     Dosage: 3000 MG
     Route: 042
     Dates: start: 20190402, end: 20190402
  35. OLECLUMAB. [Concomitant]
     Active Substance: OLECLUMAB
     Dosage: 3000 MG
     Route: 042
     Dates: start: 20190903, end: 20190903
  36. GEMCITABINE. [Concomitant]
     Active Substance: GEMCITABINE
     Dosage: 1000 MG/M2
     Route: 065
     Dates: start: 20190430, end: 20190430
  37. GEMCITABINE. [Concomitant]
     Active Substance: GEMCITABINE
     Dosage: 1000 MG/M2
     Route: 065
     Dates: start: 20190819, end: 20190819
  38. ABRAXANE [Suspect]
     Active Substance: PACLITAXEL
     Indication: DUCTAL ADENOCARCINOMA OF PANCREAS
     Dosage: 125 MG/M2
     Route: 041
     Dates: start: 20190218, end: 20190218
  39. ABRAXANE [Suspect]
     Active Substance: PACLITAXEL
     Dosage: 125 MG/M2
     Route: 041
     Dates: start: 20190416, end: 20190416
  40. ABRAXANE [Suspect]
     Active Substance: PACLITAXEL
     Dosage: 125 MG/M2
     Route: 041
     Dates: start: 20190430, end: 20190430
  41. ABRAXANE [Suspect]
     Active Substance: PACLITAXEL
     Dosage: 125 MG/M2
     Route: 041
     Dates: start: 20190514, end: 20190514
  42. ABRAXANE [Suspect]
     Active Substance: PACLITAXEL
     Dosage: 125 MG/M2
     Route: 041
     Dates: start: 20190528, end: 20190528
  43. ABRAXANE [Suspect]
     Active Substance: PACLITAXEL
     Dosage: 125 MG/M2
     Route: 041
     Dates: start: 20190625, end: 20190625
  44. ABRAXANE [Suspect]
     Active Substance: PACLITAXEL
     Dosage: 125 MG/M2
     Route: 041
     Dates: start: 20190806, end: 20190806
  45. ABRAXANE [Suspect]
     Active Substance: PACLITAXEL
     Dosage: 125 MG/M2
     Route: 041
     Dates: start: 20190917, end: 20190917
  46. OLECLUMAB. [Concomitant]
     Active Substance: OLECLUMAB
     Dosage: 3000 MG
     Route: 042
     Dates: start: 20191002, end: 20191002
  47. OLECLUMAB. [Concomitant]
     Active Substance: OLECLUMAB
     Dosage: 3000 MG
     Route: 042
     Dates: start: 20191105, end: 20191105
  48. MEDI4736 [Concomitant]
     Active Substance: DURVALUMAB
     Dosage: 1500 MILLIGRAM
     Route: 042
     Dates: start: 20191002, end: 20191002
  49. MEDI4736 [Concomitant]
     Active Substance: DURVALUMAB
     Dosage: 1500 MILLIGRAM
     Route: 042
     Dates: start: 20191105, end: 20191105
  50. GEMCITABINE. [Concomitant]
     Active Substance: GEMCITABINE
     Dosage: 1000 MG/M2
     Route: 065
     Dates: start: 20190423, end: 20190423
  51. GEMCITABINE. [Concomitant]
     Active Substance: GEMCITABINE
     Dosage: 1000 MG/M2
     Route: 065
     Dates: start: 20190514, end: 20190514
  52. GEMCITABINE. [Concomitant]
     Active Substance: GEMCITABINE
     Dosage: 1000 MG/M2
     Route: 065
     Dates: start: 20190917, end: 20190917
  53. ABRAXANE [Suspect]
     Active Substance: PACLITAXEL
     Dosage: 125 MG/M2
     Route: 041
     Dates: start: 20190226, end: 20190226
  54. ABRAXANE [Suspect]
     Active Substance: PACLITAXEL
     Dosage: 125 MG/M2
     Route: 041
     Dates: start: 20190319, end: 20190319
  55. ABRAXANE [Suspect]
     Active Substance: PACLITAXEL
     Dosage: 125 MG/M2
     Route: 041
     Dates: start: 20190423, end: 20190423
  56. ABRAXANE [Suspect]
     Active Substance: PACLITAXEL
     Dosage: 125 MG/M2
     Route: 041
     Dates: start: 20190903, end: 20190903
  57. OLECLUMAB. [Concomitant]
     Active Substance: OLECLUMAB
     Dosage: 3000 MG
     Route: 042
     Dates: start: 20190305, end: 20190305
  58. OLECLUMAB. [Concomitant]
     Active Substance: OLECLUMAB
     Dosage: 3000 MG
     Route: 042
     Dates: start: 20190709, end: 20190709
  59. MEDI4736 [Concomitant]
     Active Substance: DURVALUMAB
     Dosage: 1500 MILLIGRAM
     Route: 042
     Dates: start: 20190319, end: 20190319
  60. MEDI4736 [Concomitant]
     Active Substance: DURVALUMAB
     Dosage: 1500 MILLIGRAM
     Route: 042
     Dates: start: 20190514, end: 20190514
  61. GEMCITABINE. [Concomitant]
     Active Substance: GEMCITABINE
     Dosage: 1000 MG/M2
     Route: 065
     Dates: start: 20190402, end: 20190402
  62. GEMCITABINE. [Concomitant]
     Active Substance: GEMCITABINE
     Dosage: 1000 MG/M2
     Route: 065
     Dates: start: 20190416, end: 20190416
  63. GEMCITABINE. [Concomitant]
     Active Substance: GEMCITABINE
     Dosage: 1000 MG/M2
     Route: 065
     Dates: start: 20190521, end: 20190521
  64. GEMCITABINE. [Concomitant]
     Active Substance: GEMCITABINE
     Dosage: 1000 MG/M2
     Route: 065
     Dates: start: 20190709, end: 20190709
  65. GEMCITABINE. [Concomitant]
     Active Substance: GEMCITABINE
     Dosage: 1000 MG/M2
     Route: 065
     Dates: start: 20190903, end: 20190903
  66. GEMCITABINE. [Concomitant]
     Active Substance: GEMCITABINE
     Dosage: 1000 MG/M2
     Route: 065
     Dates: start: 20191009, end: 20191009
  67. ABRAXANE [Suspect]
     Active Substance: PACLITAXEL
     Dosage: 125 MG/M2
     Route: 041
     Dates: start: 20190305, end: 20190305
  68. OLECLUMAB. [Concomitant]
     Active Substance: OLECLUMAB
     Dosage: 3000 MG
     Route: 042
     Dates: start: 20190416, end: 20190416
  69. MEDI4736 [Concomitant]
     Active Substance: DURVALUMAB
     Dosage: 1500 MILLIGRAM
     Route: 042
     Dates: start: 20190612, end: 20190612
  70. MEDI4736 [Concomitant]
     Active Substance: DURVALUMAB
     Dosage: 1500 MILLIGRAM
     Route: 042
     Dates: start: 20190806, end: 20190806
  71. GEMCITABINE. [Concomitant]
     Active Substance: GEMCITABINE
     Dosage: 1000 MG/M2
     Route: 065
     Dates: start: 20190226, end: 20190226
  72. GEMCITABINE. [Concomitant]
     Active Substance: GEMCITABINE
     Dosage: 1000 MG/M2
     Route: 065
     Dates: start: 20190813, end: 20190813
  73. ABRAXANE [Suspect]
     Active Substance: PACLITAXEL
     Dosage: 125 MG/M2
     Route: 041
     Dates: start: 20191105, end: 20191105
  74. MEDI4736 [Concomitant]
     Active Substance: DURVALUMAB
     Indication: DUCTAL ADENOCARCINOMA OF PANCREAS
     Dosage: 1500 MILLIGRAM
     Route: 042
     Dates: start: 20190218, end: 20190218
  75. GEMCITABINE. [Concomitant]
     Active Substance: GEMCITABINE
     Dosage: 1000 MG/M2
     Route: 065
     Dates: start: 20190305, end: 20190305
  76. GEMCITABINE. [Concomitant]
     Active Substance: GEMCITABINE
     Dosage: 1000 MG/M2
     Route: 065
     Dates: start: 20190326, end: 20190326
  77. GEMCITABINE. [Concomitant]
     Active Substance: GEMCITABINE
     Dosage: 1000 MG/M2
     Route: 065
     Dates: start: 20190625, end: 20190625
  78. GEMCITABINE. [Concomitant]
     Active Substance: GEMCITABINE
     Dosage: 1000 MG/M2
     Route: 065
     Dates: start: 20191119, end: 20191119

REACTIONS (2)
  - Abdominal infection [Recovered/Resolved]
  - Cholangitis [Recovered/Resolved]

NARRATIVE: CASE EVENT DATE: 20191122
